FAERS Safety Report 5648063-X (Version None)
Quarter: 2008Q1

REPORT INFORMATION
  Report Type: 
  Country: None (occurrence: None)
  Receive Date: 20080229
  Receipt Date: 20080229
  Transmission Date: 20080703
  Serious: Yes (Hospitalization)
  Sender: FDA-Public Use
  Company Number: None

PATIENT
  Age: 64 Year
  Sex: Male

DRUGS (1)
  1. INSULIN [Suspect]
     Indication: DIABETES MELLITUS
     Dosage: 30UNITS BID SQ
     Route: 058
     Dates: start: 20020329, end: 20071118

REACTIONS (1)
  - HYPOGLYCAEMIA [None]
